FAERS Safety Report 7690566-0 (Version None)
Quarter: 2011Q3

REPORT INFORMATION
  Report Type: 
  Country: None (occurrence: None)
  Receive Date: 20110818
  Receipt Date: 20110809
  Transmission Date: 20111222
  Serious: Yes (Hospitalization, Other)
  Sender: FDA-Public Use
  Company Number: US-BAYER-201040492NA

PATIENT
  Age: 18 Year
  Sex: Female
  Weight: 61 kg

DRUGS (11)
  1. DEXAMETHASONE [Concomitant]
     Indication: POLYCYSTIC OVARIES
     Dosage: 25 MG, QD
     Route: 048
  2. YASMIN [Suspect]
     Indication: ACNE
     Route: 048
     Dates: start: 20030601, end: 20091101
  3. OMEPRAZOLE [Concomitant]
     Dosage: 20 MG, BID
  4. CEPHALEXIN [Concomitant]
     Dosage: 500 MG, UNK
  5. AZITHROMYCIN [Concomitant]
     Dosage: 250 MG, UNK
  6. YASMIN [Suspect]
     Indication: CONTRACEPTION
  7. MULTI-VITAMIN [Concomitant]
     Dosage: UNK UNK, QD
  8. NEXIUM [Concomitant]
     Dosage: 40 MG, QD
     Route: 048
  9. ALBUTEROL SULFATE AUTOHALER [Concomitant]
     Dosage: UNK UNK, PRN
  10. METOCLOPRAMIDE [Concomitant]
     Dosage: 10 MG, QD
  11. YASMIN [Suspect]
     Indication: MENSTRUATION IRREGULAR

REACTIONS (6)
  - GALLBLADDER DISORDER [None]
  - CHOLECYSTITIS CHRONIC [None]
  - GASTROOESOPHAGEAL REFLUX DISEASE [None]
  - OESOPHAGEAL SPASM [None]
  - CHEST PAIN [None]
  - CHOLELITHIASIS [None]
